FAERS Safety Report 4384828-2 (Version None)
Quarter: 2004Q2

REPORT INFORMATION
  Report Type: 
  Country: None (occurrence: None)
  Receive Date: 20040625
  Receipt Date: 20010410
  Transmission Date: 20050107
  Serious: Yes (Hospitalization)
  Sender: FDA-Public Use
  Company Number: US-BRISTOL-MYERS SQUIBB COMPANY-10790897

PATIENT
  Age: 65 Year
  Sex: Female

DRUGS (8)
  1. PLACEBO [Concomitant]
     Indication: RHEUMATOID ARTHRITIS
     Route: 042
     Dates: start: 20010305, end: 20010402
  2. LEDERTREXATE [Suspect]
     Dates: start: 20000425, end: 20010411
  3. FEXOFENADINE HCL [Suspect]
  4. ATENOLOL [Suspect]
  5. CHLORTALIDONE [Concomitant]
     Dates: start: 19991001
  6. CONJUGATED ESTROGEN [Concomitant]
     Dates: start: 19960101
  7. FLUTICASONE PROPIONATE [Concomitant]
     Dates: start: 20000801
  8. ORTHO-GYNEST [Concomitant]
     Dates: start: 19960101

REACTIONS (4)
  - ANAEMIA [None]
  - ARTHRITIS INFECTIVE [None]
  - LEUKOPENIA [None]
  - SEPSIS [None]
